FAERS Safety Report 16844440 (Version 7)
Quarter: 2022Q3

REPORT INFORMATION
  Report Type: Spontaneous
  Country: JP (occurrence: JP)
  Receive Date: 20190924
  Receipt Date: 20220713
  Transmission Date: 20221027
  Serious: Yes (Hospitalization, Disabling, Other)
  Sender: FDA-Public Use
  Company Number: JP-GSKNCCC-CASE-00762076

PATIENT

DRUGS (14)
  1. DUTASTERIDE [Suspect]
     Active Substance: DUTASTERIDE
     Indication: Benign prostatic hyperplasia
     Dosage: 0.5 MG, QD, IN THE MORNING
     Route: 048
     Dates: end: 20190827
  2. OLMESARTAN OD TABLETS [Concomitant]
     Dosage: 10 MG, QD
     Route: 048
  3. TAMSULOSIN HYDROCHLORIDE [Concomitant]
     Active Substance: TAMSULOSIN HYDROCHLORIDE
     Dosage: 0.2 MG, QD
     Route: 048
  4. FUROSEMIDE [Concomitant]
     Active Substance: FUROSEMIDE
     Dosage: 20 MG, QD
     Route: 048
  5. LANSOPRAZOLE-OD TABLETS [Concomitant]
     Dosage: 30 MG, QD
     Route: 048
  6. RIVAROXABAN [Concomitant]
     Active Substance: RIVAROXABAN
     Indication: Atrial fibrillation
     Dosage: 10 MG, QD
     Route: 048
     Dates: start: 20190806, end: 20190827
  7. SPIRONOLACTONE [Concomitant]
     Active Substance: SPIRONOLACTONE
     Indication: Oedema
     Dosage: 25 MG, QD
     Route: 048
     Dates: start: 20190806, end: 20190827
  8. SPIRONOLACTONE [Concomitant]
     Active Substance: SPIRONOLACTONE
     Indication: Pleural effusion
  9. SPIRONOLACTONE [Concomitant]
     Active Substance: SPIRONOLACTONE
     Indication: Blood potassium decreased
  10. SEROQUEL [Concomitant]
     Active Substance: QUETIAPINE FUMARATE
     Dosage: 12.5 MG, QD
     Route: 048
  11. MAGNESIUM OXIDE [Concomitant]
     Active Substance: MAGNESIUM OXIDE
     Dosage: 330 MG, BID
     Route: 048
  12. RISPERDAL FINE GRANULES [Concomitant]
     Dosage: 0.025 G, QD
     Route: 048
  13. GLUCONSAN K FINE GRANULES [Concomitant]
     Indication: Blood potassium decreased
     Dosage: UNK
  14. FUROSEMIDE [Concomitant]
     Active Substance: FUROSEMIDE
     Indication: Generalised oedema
     Dosage: 20 MG PER DOSE, THE NUMBER OF DOSES: TWICE
     Dates: start: 20190803, end: 20190804

REACTIONS (9)
  - Depressed level of consciousness [Unknown]
  - Generalised oedema [Unknown]
  - Hypoalbuminaemia [Unknown]
  - Subdural haematoma [Unknown]
  - Somnolence [Unknown]
  - Dysphagia [Unknown]
  - Fall [Unknown]
  - Head injury [Unknown]
  - Pleural effusion [Unknown]

NARRATIVE: CASE EVENT DATE: 20190701
